FAERS Safety Report 10246063 (Version 2)
Quarter: 2014Q2

REPORT INFORMATION
  Report Type: Spontaneous
  Country: US (occurrence: US)
  Receive Date: 20140619
  Receipt Date: 20140619
  Transmission Date: 20141212
  Serious: Yes (Other)
  Sender: FDA-Public Use
  Company Number: US-THROMBOGENICS INC.-JET-2014-109

PATIENT
  Sex: Female

DRUGS (2)
  1. JETREA [Suspect]
     Indication: VITREOUS ADHESIONS
     Dosage: 0.125 MG, ONE TIME DOSE
     Route: 031
     Dates: start: 20130705, end: 20130705
  2. JETREA [Suspect]
     Indication: MACULAR HOLE

REACTIONS (3)
  - Macular oedema [Not Recovered/Not Resolved]
  - Visual acuity reduced [Recovered/Resolved]
  - Chromatopsia [Recovered/Resolved]
